FAERS Safety Report 13020886 (Version 1)
Quarter: 2016Q4

REPORT INFORMATION
  Report Type: Spontaneous
  Country: US (occurrence: US)
  Receive Date: 20161212
  Receipt Date: 20161212
  Transmission Date: 20170207
  Serious: Yes (Death, Other)
  Sender: FDA-Public Use
  Company Number: US-009507513-1612USA005700

PATIENT
  Age: 46 Year
  Sex: Male

DRUGS (1)
  1. HEXADROL [Suspect]
     Active Substance: DEXAMETHASONE
     Indication: SPINAL CORD COMPRESSION
     Dosage: 4 MG, EVERY 6 HOURS
     Route: 048

REACTIONS (1)
  - Tumour lysis syndrome [Fatal]
